FAERS Safety Report 8603460-5 (Version None)
Quarter: 2012Q3

REPORT INFORMATION
  Report Type: 
  Country: None (occurrence: None)
  Receive Date: 20120817
  Receipt Date: 20120813
  Transmission Date: 20120928
  Serious: Yes (Life-Threatening, Hospitalization)
  Sender: FDA-Public Use
  Company Number: US-ASTRAZENECA-2012SE57156

PATIENT
  Age: 47 Year
  Sex: Female

DRUGS (14)
  1. FISH OIL [Concomitant]
  2. CYMBALTA [Concomitant]
  3. PRAZOSIN [Concomitant]
     Indication: POST-TRAUMATIC STRESS DISORDER
  4. KLONOPIN [Concomitant]
  5. SEROQUEL [Suspect]
     Indication: BIPOLAR DISORDER
     Route: 048
  6. SEROQUEL [Suspect]
     Indication: MANIA
     Route: 048
  7. AMBIEN [Concomitant]
  8. BENADRYL [Concomitant]
  9. METFORMIN HYDROCHLORIDE [Concomitant]
  10. FLAXSEED OIL [Concomitant]
  11. SEROQUEL [Suspect]
     Indication: DEPRESSION
     Route: 048
  12. PRILOSEC OTC [Suspect]
     Route: 048
  13. CELEXA [Concomitant]
  14. GLYBURIDE [Concomitant]

REACTIONS (7)
  - SUICIDE ATTEMPT [None]
  - COMMUNICATION DISORDER [None]
  - CRYING [None]
  - DRUG DOSE OMISSION [None]
  - MALAISE [None]
  - POST-TRAUMATIC STRESS DISORDER [None]
  - SOCIAL PHOBIA [None]
